FAERS Safety Report 25987037 (Version 2)
Quarter: 2025Q4

REPORT INFORMATION
  Report Type: Report from Study
  Country: US (occurrence: None)
  Receive Date: 20251103
  Receipt Date: 20251208
  Transmission Date: 20260117
  Serious: Yes (Hospitalization, Other)
  Sender: UCB
  Company Number: US-UCBSA-2025065806

PATIENT

DRUGS (1)
  1. ROZANOLIXIZUMAB [Suspect]
     Active Substance: ROZANOLIXIZUMAB
     Indication: Myasthenia gravis
     Dosage: UNK, WEEKLY (QW) (ONCE WEEKLY FOR 6 WEEKS)

REACTIONS (3)
  - Myasthenia gravis crisis [Recovering/Resolving]
  - Appendicectomy [Recovering/Resolving]
  - Cardiac disorder [Not Recovered/Not Resolved]
